FAERS Safety Report 8756398 (Version 3)
Quarter: 2013Q4

REPORT INFORMATION
  Report Type: Spontaneous
  Country: GB (occurrence: GB)
  Receive Date: 20120828
  Receipt Date: 20131031
  Transmission Date: 20140711
  Serious: Yes (Disabling, Other)
  Sender: FDA-Public Use
  Company Number: GB-009507513-0707GBR00110

PATIENT
  Age: 29 Year
  Sex: Male
  Weight: 91 kg

DRUGS (2)
  1. PROPECIA 1MG FILM-COATED TABLET [Suspect]
     Indication: ALOPECIA
     Dosage: 1 MG, QD
     Route: 048
     Dates: start: 20010125, end: 20030801
  2. 5-ALPHA REDUCTASE INHIBITOR (UNSPECIFIED) [Concomitant]

REACTIONS (7)
  - Pelvic pain [Not Recovered/Not Resolved]
  - Prostatitis [Not Recovered/Not Resolved]
  - Libido decreased [Recovered/Resolved]
  - Erectile dysfunction [Recovering/Resolving]
  - Prostatitis [Not Recovered/Not Resolved]
  - Mobility decreased [Unknown]
  - Suicidal ideation [Unknown]
